FAERS Safety Report 12887869 (Version 1)
Quarter: 2016Q4

REPORT INFORMATION
  Report Type: Report from Study
  Country: US (occurrence: US)
  Receive Date: 20161027
  Receipt Date: 20161027
  Transmission Date: 20170207
  Serious: Yes (Other)
  Sender: FDA-Public Use
  Company Number: US-AMGEN-USASL2016145646

PATIENT
  Age: 78 Year
  Sex: Female

DRUGS (1)
  1. PROLIA [Suspect]
     Active Substance: DENOSUMAB
     Indication: OSTEOPOROSIS POSTMENOPAUSAL
     Dosage: UNK
     Route: 065

REACTIONS (9)
  - Feeling abnormal [Unknown]
  - Arthralgia [Unknown]
  - Angina pectoris [Unknown]
  - Headache [Unknown]
  - Back pain [Unknown]
  - Vomiting [Unknown]
  - Osteonecrosis of jaw [Unknown]
  - Abdominal pain upper [Unknown]
  - Nausea [Unknown]
